FAERS Safety Report 23141263 (Version 1)
Quarter: 2023Q4

REPORT INFORMATION
  Report Type: Spontaneous
  Country: CL (occurrence: None)
  Receive Date: 20231103
  Receipt Date: 20231103
  Transmission Date: 20240109
  Serious: Yes (Other)
  Sender: FDA-Public Use
  Company Number: CL-ROCHE-3450148

PATIENT
  Age: 85 Year
  Sex: Female
  Weight: 69.9 kg

DRUGS (17)
  1. POLIVY [Suspect]
     Active Substance: POLATUZUMAB VEDOTIN-PIIQ
     Indication: Diffuse large B-cell lymphoma
     Route: 065
     Dates: start: 20220503, end: 20220825
  2. RITUXIMAB [Suspect]
     Active Substance: RITUXIMAB
     Indication: Diffuse large B-cell lymphoma
     Route: 065
     Dates: start: 20220503, end: 20220825
  3. CYCLOPHOSPHAMIDE [Concomitant]
     Active Substance: CYCLOPHOSPHAMIDE
     Dosage: DOSE AND FREQUENCY WERE NOT REPORTED
     Dates: start: 20220503, end: 20220825
  4. DOXORUBICIN [Concomitant]
     Active Substance: DOXORUBICIN
     Dosage: DOSE AND FREQUENCY WERE NOT REPORTED
     Dates: start: 20220503, end: 20220825
  5. PREDNISONE [Concomitant]
     Active Substance: PREDNISONE
     Dosage: DOSE AND FREQUENCY WERE NOT REPORTED
     Dates: start: 20220503, end: 20220825
  6. LENALIDOMIDE [Concomitant]
     Active Substance: LENALIDOMIDE
     Dosage: DOSE AND FREQUENCY WERE NOT REPORTED
     Dates: start: 20230311, end: 20230630
  7. JANUVIA [Concomitant]
     Active Substance: SITAGLIPTIN PHOSPHATE
     Dates: start: 20230721
  8. DULOXETINE [Concomitant]
     Active Substance: DULOXETINE
     Dates: start: 20220426
  9. VALACYCLOVIR [Concomitant]
     Active Substance: VALACYCLOVIR HYDROCHLORIDE
     Indication: Prophylaxis
     Dates: start: 20220426
  10. COTRIMOXAZOLE [Concomitant]
     Active Substance: SULFAMETHOXAZOLE\TRIMETHOPRIM
     Indication: Prophylaxis
     Dosage: 1 A DAY
     Dates: start: 20220426
  11. ESOMEPRAZOLE [Concomitant]
     Active Substance: ESOMEPRAZOLE
     Indication: Prophylaxis
     Dates: start: 20220426
  12. ATORVASTATIN [Concomitant]
     Active Substance: ATORVASTATIN
     Indication: Hypercholesterolaemia
     Dates: start: 2013
  13. MELATONIN [Concomitant]
     Active Substance: MELATONIN
     Indication: Adjustment disorder
     Dosage: AT NIGHT
     Dates: start: 20230426
  14. LEVOTHYROXINE SODIUM [Concomitant]
     Active Substance: LEVOTHYROXINE SODIUM
     Indication: Hypothyroidism
     Dates: start: 2003
  15. FENOTEROL HYDROBROMIDE\IPRATROPIUM BROMIDE [Concomitant]
     Active Substance: FENOTEROL HYDROBROMIDE\IPRATROPIUM BROMIDE
     Indication: Bronchitis
     Dosage: 2 PUFFS EVERY
     Dates: start: 20230713
  16. ZOMETA [Concomitant]
     Active Substance: ZOLEDRONIC ACID
     Indication: Osteitis deformans
     Dates: start: 2015
  17. LOPERAMIDE [Concomitant]
     Active Substance: LOPERAMIDE
     Indication: Radiation proctitis
     Route: 048
     Dates: start: 20231011

REACTIONS (6)
  - Febrile neutropenia [Unknown]
  - Disease progression [Unknown]
  - Off label use [Unknown]
  - Radiation proctitis [Unknown]
  - Blood glucose increased [Unknown]
  - Arthritis [Unknown]
